FAERS Safety Report 5049472-2 (Version None)
Quarter: 2006Q3

REPORT INFORMATION
  Report Type: 
  Country: None (occurrence: None)
  Receive Date: 20060711
  Receipt Date: 20060711
  Transmission Date: 20061208
  Serious: Yes (Death)
  Sender: FDA-Public Use
  Company Number: None

PATIENT
  Age: 81 Year
  Sex: Female
  Weight: 97.5234 kg

DRUGS (2)
  1. DECADRON [Suspect]
     Indication: BRAIN OEDEMA
     Dosage: 4 MG DOWN TO .5MG  4X PER DAY TO 1 PO
     Route: 048
     Dates: start: 20060427, end: 20060703
  2. DECADRON [Suspect]
     Dosage: .5MG  1 IV
     Route: 042

REACTIONS (8)
  - ASTHENIA [None]
  - BEDRIDDEN [None]
  - BLOOD GLUCOSE INCREASED [None]
  - FACE OEDEMA [None]
  - MUSCULAR WEAKNESS [None]
  - MYOPATHY [None]
  - OEDEMA [None]
  - OEDEMA PERIPHERAL [None]
